FAERS Safety Report 7443912-7 (Version None)
Quarter: 2011Q2

REPORT INFORMATION
  Report Type: 
  Country: None (occurrence: None)
  Receive Date: 20110429
  Receipt Date: 20110419
  Transmission Date: 20111010
  Serious: Yes (Other)
  Sender: FDA-Public Use
  Company Number: GB-PAR PHARMACEUTICAL, INC-2011SCPR002922

PATIENT

DRUGS (2)
  1. FLUOXETINE [Suspect]
     Dosage: 40 MG, DAILY
     Route: 065
  2. FLUOXETINE [Suspect]
     Indication: DEPRESSION
     Dosage: 20 MG, DAILY
     Route: 065

REACTIONS (2)
  - PROLONGED LABOUR [None]
  - DRUG EXPOSURE DURING PREGNANCY [None]
